FAERS Safety Report 9204832 (Version 1)
Quarter: 2013Q2

REPORT INFORMATION
  Report Type: Spontaneous
  Country: US (occurrence: US)
  Receive Date: 20130402
  Receipt Date: 20130402
  Transmission Date: 20140414
  Serious: No
  Sender: FDA-Public Use
  Company Number: US-009507513-1304USA000536

PATIENT
  Age: 21 Year
  Sex: Male

DRUGS (4)
  1. PEG-INTRON [Suspect]
     Dosage: 120 MCG/0.5 ML, QW AS DIRECTED
     Route: 058
  2. VICTRELIS [Suspect]
     Dosage: 4 DF, TID, WITH FOOD
     Route: 048
  3. RIBAPAK [Suspect]
     Dosage: 1000/DAY
  4. NOVOLOG [Concomitant]
     Dosage: 100/ML

REACTIONS (1)
  - Fatigue [Unknown]
